FAERS Safety Report 24559107 (Version 3)
Quarter: 2024Q4

REPORT INFORMATION
  Report Type: Spontaneous
  Country: KR (occurrence: KR)
  Receive Date: 20241029
  Receipt Date: 20241114
  Transmission Date: 20250115
  Serious: Yes (Death)
  Sender: TEVA
  Company Number: KR-TEVA-VS-3257388

PATIENT
  Age: 60 Year
  Sex: Female

DRUGS (8)
  1. ETOPOSIDE [Suspect]
     Active Substance: ETOPOSIDE
     Indication: Bile duct cancer stage III
     Dosage: 6 CYCLES WITH CISPLATIN
     Route: 065
  2. IRINOTECAN [Suspect]
     Active Substance: IRINOTECAN
     Indication: Neuroendocrine carcinoma
     Dosage: 4?CYCLES WITH FLUOROURACIL
     Route: 065
  3. FLUOROURACIL [Suspect]
     Active Substance: FLUOROURACIL
     Indication: Bile duct cancer stage III
     Dosage: 5-FLUOROURACIL. 4 CYCLES WITH IRINOTECAN
     Route: 065
  4. FLUOROURACIL [Suspect]
     Active Substance: FLUOROURACIL
     Indication: Bile duct cancer stage III
     Dosage: 5-FLUOROURACIL, 2 CYCLES WITH CISPLATIN
     Route: 065
  5. FLUOROURACIL [Suspect]
     Active Substance: FLUOROURACIL
     Indication: Bile duct cancer stage III
     Dosage: 5-FLUOROURACIL, 8?CYCLES WITH OXALIPLATIN
     Route: 065
  6. CISPLATIN [Suspect]
     Active Substance: CISPLATIN
     Indication: Bile duct cancer stage III
     Dosage: 6 CYCLES WITH ETOPOSIDE
     Route: 065
  7. CISPLATIN [Suspect]
     Active Substance: CISPLATIN
     Indication: Bile duct cancer stage III
     Dosage: 2?CYCLES WITH FLUOROURACIL
     Route: 065
  8. OXALIPLATIN [Suspect]
     Active Substance: OXALIPLATIN
     Indication: Bile duct cancer stage III
     Dosage: 8?CYCLES WITH FLUOROURACIL
     Route: 065

REACTIONS (1)
  - Drug ineffective [Fatal]
